FAERS Safety Report 23981403 (Version 1)
Quarter: 2024Q2

REPORT INFORMATION
  Report Type: Spontaneous
  Country: US (occurrence: None)
  Receive Date: 20240614
  Receipt Date: 20240614
  Transmission Date: 20240715
  Serious: No
  Sender: FDA-Public Use
  Company Number: None

PATIENT
  Age: 56 Year
  Sex: Female

DRUGS (1)
  1. PROMACTA [Suspect]
     Active Substance: ELTROMBOPAG OLAMINE
     Indication: Immune thrombocytopenia
     Dosage: TAKE 1 TABLET BY MOUTH DAILY ON EMPTY STOMACH  1 OR  2 HOURS BEFORE OR AFTER FOOD AS DIRE
     Route: 048
     Dates: start: 202402

REACTIONS (2)
  - Foot fracture [None]
  - Ankle fracture [None]
